FAERS Safety Report 6659572-9 (Version None)
Quarter: 2010Q1

REPORT INFORMATION
  Report Type: 
  Country: None (occurrence: None)
  Receive Date: 20100330
  Receipt Date: 20100310
  Transmission Date: 20100710
  Serious: Yes (Hospitalization)
  Sender: FDA-Public Use
  Company Number: PHHO2010BE04014

PATIENT
  Sex: Male
  Weight: 88 kg

DRUGS (2)
  1. CERTICAN [Suspect]
     Indication: RENAL TRANSPLANT
     Dosage: UNK
  2. MYFORTIC [Suspect]
     Indication: RENAL TRANSPLANT
     Dosage: 1080 MG
     Route: 048
     Dates: start: 20100107

REACTIONS (4)
  - EXOSTOSIS [None]
  - IMPAIRED HEALING [None]
  - NEUROPATHIC ARTHROPATHY [None]
  - SKIN ULCER [None]
